FAERS Safety Report 4699435-1 (Version None)
Quarter: 2005Q2

REPORT INFORMATION
  Report Type: 
  Country: None (occurrence: None)
  Receive Date: 20050624
  Receipt Date: 20050314
  Transmission Date: 20051028
  Serious: Yes (Hospitalization, Disabling, Other)
  Sender: FDA-Public Use
  Company Number: US-MERCK-0503USA02933

PATIENT
  Age: 71 Year
  Sex: Male
  Weight: 85 kg

DRUGS (5)
  1. VIOXX [Suspect]
     Indication: BACK PAIN
     Route: 048
     Dates: start: 20020708, end: 20020701
  2. VIOXX [Suspect]
     Route: 048
     Dates: start: 20020701, end: 20040928
  3. VIOXX [Suspect]
     Route: 048
     Dates: start: 20030818, end: 20030901
  4. VIOXX [Suspect]
     Route: 048
     Dates: start: 20010101
  5. VIOXX [Suspect]
     Route: 048
     Dates: end: 20041001

REACTIONS (52)
  - ABDOMINAL PAIN UPPER [None]
  - ACTINIC KERATOSIS [None]
  - AMNESIA [None]
  - ANAEMIA [None]
  - ANXIETY [None]
  - BACK INJURY [None]
  - BACK PAIN [None]
  - BALANCE DISORDER [None]
  - BRONCHITIS [None]
  - CAROTID ARTERY STENOSIS [None]
  - CARPAL TUNNEL SYNDROME [None]
  - CEREBROVASCULAR ACCIDENT [None]
  - CHEST PAIN [None]
  - CONTUSION [None]
  - DEPRESSION [None]
  - DIZZINESS [None]
  - DIZZINESS POSTURAL [None]
  - DYSPNOEA [None]
  - DYSURIA [None]
  - ESSENTIAL TREMOR [None]
  - EYE PAIN [None]
  - EYE PRURITUS [None]
  - FALL [None]
  - GASTROOESOPHAGEAL REFLUX DISEASE [None]
  - HAEMORRHAGE [None]
  - HEADACHE [None]
  - HYPERSENSITIVITY [None]
  - HYPERTONIC BLADDER [None]
  - INCONTINENCE [None]
  - INTERVERTEBRAL DISC PROTRUSION [None]
  - LACRIMATION INCREASED [None]
  - MUSCLE SPASMS [None]
  - MUSCULAR WEAKNESS [None]
  - MYALGIA [None]
  - NASAL DISCOMFORT [None]
  - OEDEMA PERIPHERAL [None]
  - PAIN IN EXTREMITY [None]
  - PANIC ATTACK [None]
  - PERINEAL PAIN [None]
  - PERIPHERAL SENSORY NEUROPATHY [None]
  - PHARYNGEAL OEDEMA [None]
  - POLYNEUROPATHY [None]
  - PROSTATITIS [None]
  - RENAL DISORDER [None]
  - ROAD TRAFFIC ACCIDENT [None]
  - SINUSITIS [None]
  - SKIN LESION [None]
  - TESTICULAR PAIN [None]
  - THERMAL BURN [None]
  - TRANSIENT ISCHAEMIC ATTACK [None]
  - VENOUS INSUFFICIENCY [None]
  - VISION BLURRED [None]
